FAERS Safety Report 26005392 (Version 1)
Quarter: 2025Q4

REPORT INFORMATION
  Report Type: Spontaneous
  Country: US (occurrence: US)
  Receive Date: 20251106
  Receipt Date: 20251106
  Transmission Date: 20260118
  Serious: No
  Sender: INSMED
  Company Number: US-INSMED, INC.-2025-04074-US

PATIENT
  Age: 80 Year
  Sex: Female

DRUGS (2)
  1. BRINSUPRI [Suspect]
     Active Substance: BRENSOCATIB
     Indication: Bronchiectasis
     Dosage: 25 MILLIGRAM, UNK
     Route: 048
  2. MINOCYCLINE [Suspect]
     Active Substance: MINOCYCLINE HYDROCHLORIDE
     Indication: Product used for unknown indication
     Dosage: UNK, UNK
     Route: 065

REACTIONS (4)
  - Constipation [Unknown]
  - Nausea [Unknown]
  - Dizziness [Unknown]
  - Unevaluable event [Unknown]
